FAERS Safety Report 9314578 (Version 1)
Quarter: 2013Q2

REPORT INFORMATION
  Report Type: Spontaneous
  Country: US (occurrence: US)
  Receive Date: 20130529
  Receipt Date: 20130529
  Transmission Date: 20140414
  Serious: Yes (Other)
  Sender: FDA-Public Use
  Company Number: US-PFIZER INC-2013159742

PATIENT
  Age: 79 Year
  Sex: Male
  Weight: 76.19 kg

DRUGS (16)
  1. XALKORI [Suspect]
     Dosage: 250 MG, 2X/DAY
     Route: 048
  2. XALKORI [Suspect]
     Dosage: 200 MG, 2X/DAY
     Route: 048
     Dates: start: 20130522
  3. PLAVIX [Concomitant]
     Dosage: 75 MG, UNK
  4. AMLODIPINE [Concomitant]
     Dosage: 5 MG, UNK
  5. ECOTRIN LOW [Concomitant]
     Dosage: 81 MG, UNK
  6. CALCITRIOL [Concomitant]
     Dosage: 0.25 UG, UNK
  7. ATENOLOL [Concomitant]
     Dosage: 25 MG, UNK
  8. COMBIGAN SOL [Concomitant]
     Dosage: BRIMONIDINE TARTRATE (0.2%)/ TIMOLOL MALEATE (0.5%)
  9. FLOMAX [Concomitant]
     Dosage: 0.4 MG, UNK
  10. LIPITOR [Concomitant]
     Dosage: 10 MG, UNK
  11. LOVAZA [Concomitant]
     Dosage: 1 G, UNK
  12. RENVELA [Concomitant]
     Dosage: 800 MG, UNK
  13. NEXIUM [Concomitant]
     Dosage: 20 MG, UNK
  14. AVODART [Concomitant]
     Dosage: 0.5 MG, UNK
  15. RAMIPRIL [Concomitant]
     Dosage: 2.5 MG, UNK
  16. RENA-VITE [Concomitant]
     Dosage: UNK

REACTIONS (1)
  - Cardiovascular disorder [Recovered/Resolved]
